FAERS Safety Report 6244006-9 (Version None)
Quarter: 2009Q2

REPORT INFORMATION
  Report Type: 
  Country: None (occurrence: None)
  Receive Date: 20090623
  Receipt Date: 20090608
  Transmission Date: 20091009
  Serious: Yes (Disabling, Other)
  Sender: FDA-Public Use
  Company Number: 2009218560

PATIENT
  Age: 36 Year
  Sex: Female
  Weight: 75 kg

DRUGS (6)
  1. FRAGMIN [Suspect]
     Indication: THROMBOSIS PROPHYLAXIS
     Dosage: IU
     Dates: start: 20080611, end: 20090228
  2. MEDROL [Suspect]
     Indication: JUVENILE ARTHRITIS
     Dosage: 4 MG, 2X/DAY
     Dates: start: 19920101
  3. AZATHIOPRINE [Suspect]
     Indication: JUVENILE ARTHRITIS
     Dosage: 50 MG, 2X/DAY
     Dates: start: 19920101
  4. FOLACIN (CALCIUM PHOSPHATE, FOLIC ACID) [Concomitant]
  5. ACETYLSALICYLIC ACID SRT [Concomitant]
  6. KALCIPOS (CALCIUM CARBONATE) [Concomitant]

REACTIONS (5)
  - CAESAREAN SECTION [None]
  - DRUG EXPOSURE DURING PREGNANCY [None]
  - DRUG INTERACTION [None]
  - INJECTION SITE DISCOLOURATION [None]
  - PREGNANCY [None]
